FAERS Safety Report 5651177-1 (Version None)
Quarter: 2008Q1

REPORT INFORMATION
  Report Type: 
  Country: None (occurrence: None)
  Receive Date: 20080305
  Receipt Date: 20080227
  Transmission Date: 20080703
  Serious: Yes (Death, Hospitalization, Other)
  Sender: FDA-Public Use
  Company Number: CH-GILEAD-2008-0015521

PATIENT
  Age: 45 Year
  Sex: Male

DRUGS (5)
  1. VIREAD [Suspect]
     Indication: HIV INFECTION
     Dates: start: 20050801
  2. LAMIVUDINE [Concomitant]
     Indication: HIV INFECTION
     Dates: start: 20050801
  3. EFAVIRENZ [Concomitant]
     Indication: HIV INFECTION
     Dates: start: 20050801
  4. SULFAMETHOXAZOLE AND TRIMETHOPRIM [Concomitant]
     Indication: PNEUMOCYSTIS JIROVECI PNEUMONIA
  5. PREDNISONE TAB [Concomitant]
     Indication: PNEUMOCYSTIS JIROVECI PNEUMONIA

REACTIONS (2)
  - IMMUNE RECONSTITUTION SYNDROME [None]
  - RENAL FAILURE ACUTE [None]
